FAERS Safety Report 16520647 (Version 1)
Quarter: 2019Q3

REPORT INFORMATION
  Report Type: Spontaneous
  Country: US (occurrence: US)
  Receive Date: 20190702
  Receipt Date: 20190702
  Transmission Date: 20191004
  Serious: Yes (Hospitalization, Other)
  Sender: FDA-Public Use
  Company Number: US-SIGMAPHARM LABORATORIES, LLC-2019SIG00080

PATIENT
  Age: 62 Year
  Sex: Female

DRUGS (5)
  1. LIOTHYRONINE SODIUM. [Suspect]
     Active Substance: LIOTHYRONINE SODIUM
     Indication: THYROIDECTOMY
     Dosage: 25 ?G, 1X/DAY
     Route: 048
     Dates: end: 201708
  2. LIOTHYRONINE SODIUM. [Suspect]
     Active Substance: LIOTHYRONINE SODIUM
     Indication: THYROIDECTOMY
     Dosage: 5 ?G, 2X/DAY
     Route: 048
     Dates: start: 2018
  3. LIOTHYRONINE SODIUM. [Suspect]
     Active Substance: LIOTHYRONINE SODIUM
     Dosage: 2.5 MCG, 2X/DAY IN THE AFTERNOON AND EVENING
     Route: 048
  4. LEVOTHYROXINE. [Concomitant]
     Active Substance: LEVOTHYROXINE
  5. LIOTHYRONINE SODIUM. [Suspect]
     Active Substance: LIOTHYRONINE SODIUM
     Dosage: 5 MCG, 1X/DAY IN THE MORNING
     Route: 048

REACTIONS (15)
  - Eating disorder [Not Recovered/Not Resolved]
  - Gait disturbance [Not Recovered/Not Resolved]
  - Atrial fibrillation [Not Recovered/Not Resolved]
  - Cardioversion [Recovered/Resolved]
  - Deep vein thrombosis [Unknown]
  - Blood test abnormal [Unknown]
  - Unevaluable event [Unknown]
  - Cognitive disorder [Unknown]
  - Peripheral venous disease [Not Recovered/Not Resolved]
  - Asthenia [Recovering/Resolving]
  - Insomnia [Not Recovered/Not Resolved]
  - Limb injury [Unknown]
  - Foot deformity [Not Recovered/Not Resolved]
  - Heart rate abnormal [Unknown]
  - Peripheral swelling [Unknown]

NARRATIVE: CASE EVENT DATE: 2016
